FAERS Safety Report 7964067-6 (Version None)
Quarter: 2011Q4

REPORT INFORMATION
  Report Type: 
  Country: None (occurrence: None)
  Receive Date: 20111208
  Receipt Date: 20111202
  Transmission Date: 20120403
  Serious: Yes (Other)
  Sender: FDA-Public Use
  Company Number: US-JNJFOC-20100702429

PATIENT
  Sex: Male

DRUGS (1)
  1. LEVAQUIN [Suspect]
     Indication: PROSTATE INFECTION
     Route: 048
     Dates: start: 20050901

REACTIONS (4)
  - EPICONDYLITIS [None]
  - TENDONITIS [None]
  - TENDON PAIN [None]
  - ROTATOR CUFF SYNDROME [None]
